FAERS Safety Report 6124121-0 (Version None)
Quarter: 2009Q1

REPORT INFORMATION
  Report Type: 
  Country: None (occurrence: None)
  Receive Date: 20090316
  Receipt Date: 20090112
  Transmission Date: 20090719
  Serious: No
  Sender: FDA-Public Use
  Company Number: DSA_33085_2009

PATIENT
  Sex: Male

DRUGS (10)
  1. XENAZINE [Suspect]
     Indication: OBSESSIVE-COMPULSIVE DISORDER
     Dosage: (DF), (25 MG TID), (1/2 TABLET TID)
     Dates: start: 20080201, end: 20080101
  2. XENAZINE [Suspect]
     Indication: TIC
     Dosage: (DF), (25 MG TID), (1/2 TABLET TID)
     Dates: start: 20080201, end: 20080101
  3. XENAZINE [Suspect]
     Indication: OBSESSIVE-COMPULSIVE DISORDER
     Dosage: (DF), (25 MG TID), (1/2 TABLET TID)
     Dates: start: 20080101
  4. XENAZINE [Suspect]
     Indication: TIC
     Dosage: (DF), (25 MG TID), (1/2 TABLET TID)
     Dates: start: 20080101
  5. ZOLOFT [Suspect]
     Indication: DRUG USE FOR UNKNOWN INDICATION
     Dosage: (DF)
     Dates: start: 20080101
  6. ANTIDEPRESSANTS [Suspect]
     Indication: DRUG USE FOR UNKNOWN INDICATION
     Dosage: (DF)
  7. FLUPHENAZINE [Concomitant]
  8. . [Concomitant]
  9. XANAX [Concomitant]
  10. LEXAPRO [Concomitant]

REACTIONS (9)
  - ANXIETY [None]
  - CONDITION AGGRAVATED [None]
  - CRYING [None]
  - FATIGUE [None]
  - FEELING ABNORMAL [None]
  - NERVOUSNESS [None]
  - PSYCHOMOTOR HYPERACTIVITY [None]
  - SOMNOLENCE [None]
  - TIC [None]
